FAERS Safety Report 9601876 (Version 1)
Quarter: 2013Q4

REPORT INFORMATION
  Report Type: Spontaneous
  Country: CA (occurrence: CA)
  Receive Date: 20131007
  Receipt Date: 20131007
  Transmission Date: 20140711
  Serious: Yes (Other)
  Sender: FDA-Public Use
  Company Number: CA-AMGEN-CANSP2013069088

PATIENT
  Age: 71 Year
  Sex: Female

DRUGS (1)
  1. PROLIA [Suspect]
     Indication: OSTEOPOROSIS POSTMENOPAUSAL
     Dosage: UNK
     Route: 065
     Dates: start: 20120112

REACTIONS (10)
  - Bone loss [Unknown]
  - Groin pain [Not Recovered/Not Resolved]
  - Weight decreased [Unknown]
  - Ear congestion [Unknown]
  - Muscle spasms [Unknown]
  - Eye pruritus [Unknown]
  - Rash macular [Unknown]
  - Loose tooth [Unknown]
  - Pain in extremity [Not Recovered/Not Resolved]
  - Eczema [Unknown]
